FAERS Safety Report 15916644 (Version 4)
Quarter: 2019Q3

REPORT INFORMATION
  Report Type: Spontaneous
  Country: CA (occurrence: CA)
  Receive Date: 20190205
  Receipt Date: 20190717
  Transmission Date: 20191004
  Serious: Yes (Death, Hospitalization)
  Sender: FDA-Public Use
  Company Number: CA-ROCHE-2259255

PATIENT
  Age: 50 Year
  Sex: Female

DRUGS (2)
  1. CORTISONE [Concomitant]
     Active Substance: CORTISONE
     Indication: ASTHMA
     Dosage: 6 UNK, UNK
     Route: 065
  2. XOLAIR [Suspect]
     Active Substance: OMALIZUMAB
     Indication: ASTHMA
     Route: 058
     Dates: start: 20120515

REACTIONS (4)
  - Death [Fatal]
  - Cerebrovascular accident [Unknown]
  - Bedridden [Unknown]
  - Dyskinesia [Unknown]

NARRATIVE: CASE EVENT DATE: 201805
